FAERS Safety Report 8902048 (Version 1)
Quarter: 2012Q4

REPORT INFORMATION
  Report Type: 
  Country: PE (occurrence: PE)
  Receive Date: 20121112
  Receipt Date: 20121112
  Transmission Date: 20130627
  Serious: Yes (Other)
  Sender: FDA-Public Use
  Company Number: PHHY2012PE103579

PATIENT
  Age: 73 Year
  Sex: Female

DRUGS (2)
  1. DIOVAN HCT [Suspect]
     Indication: HYPERTENSION
     Dosage: 1 DF, 160/12.5mg
     Dates: start: 2010
  2. EXFORGE [Suspect]
     Indication: HYPERTENSION
     Dosage: 1 DF, 160/5 mg daily
     Dates: start: 2010

REACTIONS (2)
  - Amyotrophic lateral sclerosis [Not Recovered/Not Resolved]
  - Dysarthria [Not Recovered/Not Resolved]
